FAERS Safety Report 9180975 (Version 1)
Quarter: 2013Q1

REPORT INFORMATION
  Report Type: Spontaneous
  Country: US (occurrence: US)
  Receive Date: 20130322
  Receipt Date: 20130322
  Transmission Date: 20140127
  Serious: Yes (Hospitalization)
  Sender: FDA-Public Use
  Company Number: PHEH2013US006524

PATIENT
  Sex: Male

DRUGS (1)
  1. TOBI [Suspect]
     Indication: CYSTIC FIBROSIS
     Dosage: UNK UKN, UNK

REACTIONS (2)
  - Cystic fibrosis [Unknown]
  - Bronchopneumonia [Unknown]
